FAERS Safety Report 25259592 (Version 1)
Quarter: 2025Q2

REPORT INFORMATION
  Report Type: Spontaneous
  Country: US (occurrence: None)
  Receive Date: 20250430
  Receipt Date: 20250430
  Transmission Date: 20250717
  Serious: Yes (Death, Hospitalization)
  Sender: FDA-CTU
  Company Number: None

PATIENT
  Age: 74 Year
  Sex: Female
  Weight: 77.11 kg

DRUGS (1)
  1. KENALOG [Suspect]
     Active Substance: TRIAMCINOLONE ACETONIDE
     Indication: Back injury
     Dates: start: 20250115, end: 20250115

REACTIONS (7)
  - Pain in extremity [None]
  - Thrombosis [None]
  - Arthritis [None]
  - Surgery [None]
  - Post procedural complication [None]
  - Sepsis [None]
  - Peritoneal dialysis [None]

NARRATIVE: CASE EVENT DATE: 20250127
